FAERS Safety Report 19986176 (Version 1)
Quarter: 2021Q4

REPORT INFORMATION
  Report Type: Spontaneous
  Country: CN (occurrence: CN)
  Receive Date: 20211022
  Receipt Date: 20211022
  Transmission Date: 20220303
  Serious: Yes (Other)
  Sender: FDA-Public Use
  Company Number: 2021A776762

PATIENT
  Age: 19996 Day
  Sex: Male

DRUGS (9)
  1. IMFINZI [Suspect]
     Active Substance: DURVALUMAB
     Indication: Bronchial neoplasm
     Route: 041
     Dates: start: 20210903, end: 20210904
  2. IMFINZI [Suspect]
     Active Substance: DURVALUMAB
     Indication: Metastases to lymph nodes
     Route: 041
     Dates: start: 20210903, end: 20210904
  3. IMFINZI [Suspect]
     Active Substance: DURVALUMAB
     Indication: Metastases to pleura
     Route: 041
     Dates: start: 20210903, end: 20210904
  4. CISPLATIN [Suspect]
     Active Substance: CISPLATIN
     Indication: Bronchial neoplasm
     Route: 041
     Dates: start: 20210903, end: 20210905
  5. CISPLATIN [Suspect]
     Active Substance: CISPLATIN
     Indication: Metastases to lymph nodes
     Route: 041
     Dates: start: 20210903, end: 20210905
  6. CISPLATIN [Suspect]
     Active Substance: CISPLATIN
     Indication: Metastases to pleura
     Route: 041
     Dates: start: 20210903, end: 20210905
  7. ETOPOSIDE [Suspect]
     Active Substance: ETOPOSIDE
     Indication: Bronchial neoplasm
     Route: 041
     Dates: start: 20210903, end: 20210905
  8. ETOPOSIDE [Suspect]
     Active Substance: ETOPOSIDE
     Indication: Metastases to lymph nodes
     Route: 041
     Dates: start: 20210903, end: 20210905
  9. ETOPOSIDE [Suspect]
     Active Substance: ETOPOSIDE
     Indication: Metastases to pleura
     Route: 041
     Dates: start: 20210903, end: 20210905

REACTIONS (1)
  - Thrombocytopenia [Recovering/Resolving]

NARRATIVE: CASE EVENT DATE: 20210906
